FAERS Safety Report 25020755 (Version 2)
Quarter: 2025Q4

REPORT INFORMATION
  Report Type: Report from Study
  Country: EU (occurrence: None)
  Receive Date: 20250227
  Receipt Date: 20251120
  Transmission Date: 20260117
  Serious: Yes (Life-Threatening, Other)
  Sender: UCB
  Company Number: EU-UCBSA-2025010736

PATIENT
  Age: 65 Year
  Weight: 100 kg

DRUGS (6)
  1. BIMEKIZUMAB [Suspect]
     Active Substance: BIMEKIZUMAB
     Indication: Product used for unknown indication
     Dosage: UNK
  2. PROSCAR [Concomitant]
     Active Substance: FINASTERIDE
     Indication: Adenoma benign
     Dosage: 5 MILLIGRAM, ONCE DAILY (QD)
  3. ALLOPURINOL [Concomitant]
     Active Substance: ALLOPURINOL
     Indication: Hyperuricaemia
     Dosage: 100 MILLIGRAM, ONCE DAILY (QD)
  4. GEMFIBROZIL [Concomitant]
     Active Substance: GEMFIBROZIL
     Indication: Hypercholesterolaemia
     Dosage: 450 MILLIGRAM, ONCE DAILY (QD)
  5. BISOPROLOL [Concomitant]
     Active Substance: BISOPROLOL
     Indication: Hypertension
     Dosage: 1 DOSAGE FORM, ONCE DAILY (QD)
  6. BISOPROLOL [Concomitant]
     Active Substance: BISOPROLOL
     Dosage: UNK

REACTIONS (3)
  - Prostate cancer [Not Recovered/Not Resolved]
  - Metastases to nervous system [Unknown]
  - Influenza [Recovered/Resolved]
